FAERS Safety Report 9155421 (Version 2)
Quarter: 2013Q2

REPORT INFORMATION
  Report Type: Report from Study
  Country: JP (occurrence: JP)
  Receive Date: 20130311
  Receipt Date: 20130531
  Transmission Date: 20140414
  Serious: Yes (Hospitalization)
  Sender: FDA-Public Use
  Company Number: JP-ROCHE-1198089

PATIENT
  Age: 62 Year
  Sex: Male
  Weight: 59 kg

DRUGS (3)
  1. TOCILIZUMAB [Suspect]
     Indication: RHEUMATOID ARTHRITIS
     Route: 041
     Dates: start: 20120703, end: 20120703
  2. PREDNISOLONE [Concomitant]
     Indication: RHEUMATOID ARTHRITIS
     Route: 048
     Dates: end: 20120803
  3. VOLTAREN [Concomitant]
     Route: 048

REACTIONS (1)
  - Interstitial lung disease [Recovering/Resolving]
